FAERS Safety Report 17352716 (Version 2)
Quarter: 2020Q1

REPORT INFORMATION
  Report Type: Report from Study
  Country: None (occurrence: US)
  Receive Date: 20200131
  Receipt Date: 20200214
  Transmission Date: 20200409
  Serious: Yes (Other)
  Sender: FDA-Public Use
  Company Number: US-ABBVIE-20K-163-3252826-00

PATIENT
  Sex: Male

DRUGS (2)
  1. HUMIRA [Suspect]
     Active Substance: ADALIMUMAB
     Indication: RHEUMATOID ARTHRITIS
  2. HUMIRA [Suspect]
     Active Substance: ADALIMUMAB
     Indication: PSORIATIC ARTHROPATHY
     Route: 058
     Dates: start: 2018

REACTIONS (9)
  - Spinal stenosis [Not Recovered/Not Resolved]
  - Influenza [Recovering/Resolving]
  - Memory impairment [Unknown]
  - Loss of consciousness [Recovered/Resolved]
  - Hypoacusis [Not Recovered/Not Resolved]
  - Device issue [Recovered/Resolved]
  - Frustration tolerance decreased [Not Recovered/Not Resolved]
  - Speech disorder [Unknown]
  - Psychiatric symptom [Not Recovered/Not Resolved]

NARRATIVE: CASE EVENT DATE: 2019
